FAERS Safety Report 5383461-3 (Version None)
Quarter: 2007Q3

REPORT INFORMATION
  Report Type: 
  Country: None (occurrence: None)
  Receive Date: 20070706
  Receipt Date: 20070625
  Transmission Date: 20080115
  Serious: Yes (Death, Hospitalization)
  Sender: FDA-Public Use
  Company Number: GXKR2007HR05456

PATIENT
  Age: 44 Year
  Sex: Male
  Weight: 75 kg

DRUGS (8)
  1. PAROXETINE HCL [Suspect]
     Indication: MENTAL DISORDER
     Dosage: 20 MG, QD, ORAL
     Route: 048
  2. FLUPHENAZINE [Suspect]
     Indication: MENTAL DISORDER
     Dosage: SEE IMAGE
     Route: 030
  3. HALOPERIDOL [Suspect]
     Indication: MENTAL DISORDER
     Dosage: 12 MG, ORAL
     Route: 048
  4. OLANZAPINE [Suspect]
     Indication: MENTAL DISORDER
     Dosage: 30 MG, ORAL
     Route: 048
  5. ALPRAZOLAM [Concomitant]
  6. BIPERIDEN HYDROCHLORIDE TAB [Concomitant]
  7. BROMAZEPAM (BROMAZEPAM) [Concomitant]
  8. DIAZEPAM [Concomitant]

REACTIONS (18)
  - BRADYPNOEA [None]
  - BRAIN OEDEMA [None]
  - CARDIAC ARREST [None]
  - COMA [None]
  - DISORIENTATION [None]
  - DRUG INTERACTION [None]
  - FATIGUE [None]
  - GENERAL PHYSICAL HEALTH DETERIORATION [None]
  - HYPERGLYCAEMIA [None]
  - HYPONATRAEMIA [None]
  - HYPOTENSION [None]
  - HYPOVENTILATION [None]
  - INAPPROPRIATE ANTIDIURETIC HORMONE SECRETION [None]
  - KETONURIA [None]
  - LOSS OF CONSCIOUSNESS [None]
  - OXYGEN SATURATION DECREASED [None]
  - PANCREATITIS HAEMORRHAGIC [None]
  - VERTIGO [None]
